FAERS Safety Report 6865776-2 (Version None)
Quarter: 2010Q3

REPORT INFORMATION
  Report Type: 
  Country: None (occurrence: None)
  Receive Date: 20100721
  Receipt Date: 20080503
  Transmission Date: 20110219
  Serious: No
  Sender: FDA-Public Use
  Company Number: US-PFIZER INC-2008038500

PATIENT
  Sex: Female
  Weight: 63.5 kg

DRUGS (7)
  1. CHANTIX [Suspect]
     Indication: SMOKING CESSATION THERAPY
     Route: 048
     Dates: start: 20080421
  2. CALCIUM [Concomitant]
     Route: 048
  3. NAPROXEN [Concomitant]
     Route: 048
  4. LEXAPRO [Concomitant]
     Route: 048
  5. ISOSORBIDE [Concomitant]
     Route: 048
  6. DIAZEPAM [Concomitant]
     Route: 048
  7. CYCLOBENZAPRINE [Concomitant]
     Route: 048

REACTIONS (2)
  - ABDOMINAL DISTENSION [None]
  - NAUSEA [None]
